FAERS Safety Report 8553474-9 (Version None)
Quarter: 2012Q3

REPORT INFORMATION
  Report Type: 
  Country: None (occurrence: None)
  Receive Date: 20120731
  Receipt Date: 20120719
  Transmission Date: 20120928
  Serious: Yes (Life-Threatening, Other)
  Sender: FDA-Public Use
  Company Number: DE-PFIZER INC-2012081394

PATIENT

DRUGS (1)
  1. RAMIPRIL [Suspect]
     Dosage: 5 MG, UNK
     Route: 048
     Dates: start: 20090101

REACTIONS (3)
  - TUMOUR MARKER INCREASED [None]
  - DRUG-INDUCED LIVER INJURY [None]
  - HYPONATRAEMIA [None]
